FAERS Safety Report 11029788 (Version 1)
Quarter: 2015Q2

REPORT INFORMATION
  Report Type: Spontaneous
  Country: US (occurrence: None)
  Receive Date: 20150414
  Receipt Date: 20150414
  Transmission Date: 20150821
  Serious: Yes (Other)
  Sender: FDA-Public Use
  Company Number: None

PATIENT
  Age: 67 Year
  Sex: Female

DRUGS (1)
  1. NEUPOGEN [Suspect]
     Active Substance: FILGRASTIM
     Indication: BLOOD DISORDER
     Dosage: 480MG/0.8ML, QOWEEK, SUBCUTANEOUSLY
     Route: 058
     Dates: start: 20150202

REACTIONS (1)
  - Syncope [None]

NARRATIVE: CASE EVENT DATE: 20150311
